FAERS Safety Report 8387605-0 (Version None)
Quarter: 2012Q2

REPORT INFORMATION
  Report Type: 
  Country: None (occurrence: None)
  Receive Date: 20120525
  Receipt Date: 20120523
  Transmission Date: 20120825
  Serious: Yes (Hospitalization, Other)
  Sender: FDA-Public Use
  Company Number: PHHY2012DE039471

PATIENT
  Age: 54 Year
  Sex: Male

DRUGS (1)
  1. GILENYA [Suspect]
     Indication: RELAPSING-REMITTING MULTIPLE SCLEROSIS
     Dosage: 0.5 MG, QD
     Route: 048
     Dates: start: 20110701, end: 20120508

REACTIONS (5)
  - CD4/CD8 RATIO DECREASED [None]
  - CENTRAL NERVOUS SYSTEM LESION [None]
  - HEADACHE [None]
  - HYPOAESTHESIA [None]
  - DIZZINESS [None]
